FAERS Safety Report 11528732 (Version 1)
Quarter: 2015Q3

REPORT INFORMATION
  Report Type: Spontaneous
  Country: US (occurrence: US)
  Receive Date: 20150921
  Receipt Date: 20150921
  Transmission Date: 20151125
  Serious: No
  Sender: FDA-Public Use
  Company Number: US-TEVA-536966USA

PATIENT
  Sex: Female

DRUGS (3)
  1. PROTONIX [Concomitant]
     Active Substance: PANTOPRAZOLE SODIUM
  2. MELATONIN [Concomitant]
     Active Substance: MELATONIN
  3. PROVIGIL [Suspect]
     Active Substance: MODAFINIL
     Indication: BLOOD GLUCOSE INCREASED
     Route: 048
     Dates: start: 201410

REACTIONS (2)
  - Blood glucose increased [Unknown]
  - Product use issue [Unknown]
